FAERS Safety Report 8529542-4 (Version None)
Quarter: 2012Q3

REPORT INFORMATION
  Report Type: 
  Country: None (occurrence: None)
  Receive Date: 20120723
  Receipt Date: 20120711
  Transmission Date: 20120928
  Serious: Yes (Hospitalization)
  Sender: FDA-Public Use
  Company Number: JP-BAYER-2011-048970

PATIENT
  Age: 70 Year
  Sex: Male
  Weight: 64.7 kg

DRUGS (6)
  1. UREPEARL [Concomitant]
     Dosage: DAILY DOSE 7 G
     Route: 061
     Dates: start: 20101007
  2. NEXAVAR [Suspect]
     Indication: HEPATIC NEOPLASM MALIGNANT
     Dosage: 400 MG, QD
     Route: 048
     Dates: start: 20101007, end: 20101103
  3. PYDOXAL [Concomitant]
     Dosage: DAILY DOSE 60 MG
     Route: 065
     Dates: start: 20101007
  4. RABEPRAZOLE SODIUM [Concomitant]
     Dosage: DAILY DOSE 10 MG
     Route: 048
     Dates: start: 20101118
  5. BETAMETHASONE SODIUM PHOSPHATE [Concomitant]
     Dosage: DAILY DOSE 1.07 G
     Route: 061
     Dates: start: 20101007, end: 20101020
  6. MOBIC [Concomitant]
     Dosage: DAILY DOSE 5 MG
     Route: 048
     Dates: start: 20101118

REACTIONS (8)
  - NEPHROTIC SYNDROME [None]
  - WHITE BLOOD CELL COUNT DECREASED [None]
  - DIABETES MELLITUS [None]
  - HYPERTENSION [None]
  - DECREASED APPETITE [None]
  - HAEMOGLOBIN DECREASED [None]
  - FATIGUE [None]
  - BLOOD CREATININE INCREASED [None]
